FAERS Safety Report 19077079 (Version 1)
Quarter: 2021Q1

REPORT INFORMATION
  Report Type: Report from Study
  Country: US (occurrence: US)
  Receive Date: 20210331
  Receipt Date: 20210331
  Transmission Date: 20210420
  Serious: Yes (Life-Threatening, Other)
  Sender: FDA-Public Use
  Company Number: NVSC2021US065823

PATIENT
  Sex: Male

DRUGS (1)
  1. ENTRESTO [Suspect]
     Active Substance: SACUBITRIL\VALSARTAN
     Indication: PRODUCT USED FOR UNKNOWN INDICATION
     Dosage: UNK
     Route: 065

REACTIONS (7)
  - Near death experience [Unknown]
  - Tremor [Unknown]
  - Myocardial infarction [Unknown]
  - Cardiac disorder [Unknown]
  - Arthralgia [Unknown]
  - Pulmonary mass [Unknown]
  - Inability to crawl [Unknown]
